FAERS Safety Report 7203904-X (Version None)
Quarter: 2010Q4

REPORT INFORMATION
  Report Type: 
  Country: None (occurrence: None)
  Receive Date: 20101230
  Receipt Date: 20101220
  Transmission Date: 20110411
  Serious: Yes (Other)
  Sender: FDA-Public Use
  Company Number: ES-JNJFOC-20101108993

PATIENT
  Age: 42 Year
  Sex: Male
  Weight: 65 kg

DRUGS (4)
  1. REMICADE [Suspect]
     Indication: ANKYLOSING SPONDYLITIS
     Route: 042
  2. REMICADE [Suspect]
     Dosage: DOSE REPORTED AS ^3^
     Route: 042
  3. OMEPRAZOLE [Concomitant]
  4. NSAID [Concomitant]

REACTIONS (1)
  - PULMONARY TUBERCULOSIS [None]
